FAERS Safety Report 10267705 (Version 1)
Quarter: 2014Q2

REPORT INFORMATION
  Report Type: Spontaneous
  Country: FR (occurrence: FR)
  Receive Date: 20140630
  Receipt Date: 20140630
  Transmission Date: 20141212
  Serious: Yes (Hospitalization)
  Sender: FDA-Public Use
  Company Number: FR-BAYER-2014-096654

PATIENT
  Age: 10 Year
  Sex: Male

DRUGS (1)
  1. HELIXATE NEXGEN [Suspect]
     Indication: FACTOR VIII DEFICIENCY
     Dosage: 1000 IU, TIW
     Route: 042

REACTIONS (1)
  - Intra-abdominal haemorrhage [Recovered/Resolved]
